FAERS Safety Report 6257641-9 (Version None)
Quarter: 2009Q3

REPORT INFORMATION
  Report Type: 
  Country: None (occurrence: None)
  Receive Date: 20090706
  Receipt Date: 20090622
  Transmission Date: 20100115
  Serious: Yes (Other)
  Sender: FDA-Public Use
  Company Number: NL-MYLANLABS-2009S1010947

PATIENT
  Age: 46 Year
  Sex: Male

DRUGS (10)
  1. ANTITHYMOCYTE GLOBULIN [Suspect]
     Indication: TRANSPLANT REJECTION
  2. PREDNISONE [Suspect]
     Indication: TRANSPLANT REJECTION
     Dosage: HIGH-DOSE
  3. PREDNISONE [Suspect]
     Indication: IMMUNOSUPPRESSION
     Dosage: HIGH-DOSE
  4. PREDNISONE [Suspect]
  5. PREDNISONE [Suspect]
  6. PREDNISONE [Suspect]
  7. PREDNISONE [Suspect]
  8. CYCLOSPORINE [Suspect]
     Indication: TRANSPLANT REJECTION
  9. AZATHIOPRINE [Suspect]
     Indication: IMMUNOSUPPRESSION
  10. AZATHIOPRINE [Suspect]
     Dosage: 1.5 MG/KG/DAY

REACTIONS (3)
  - HYPERTENSION [None]
  - MELANOCYTIC NAEVUS [None]
  - RENAL IMPAIRMENT [None]
